FAERS Safety Report 8382421-8 (Version None)
Quarter: 2012Q2

REPORT INFORMATION
  Report Type: 
  Country: None (occurrence: None)
  Receive Date: 20120524
  Receipt Date: 20120514
  Transmission Date: 20120825
  Serious: Yes (Other)
  Sender: FDA-Public Use
  Company Number: US-JNJFOC-20120512986

PATIENT
  Sex: Female
  Weight: 66.23 kg

DRUGS (20)
  1. FOLIC ACID [Concomitant]
     Indication: PRODUCT USED FOR UNKNOWN INDICATION
     Route: 065
  2. TOCOPHEROL CONCENTRATE CAP [Concomitant]
     Indication: VITAMIN SUPPLEMENTATION
     Route: 065
  3. CYANOCOBALAMIN [Concomitant]
     Indication: SUPPLEMENTATION THERAPY
     Route: 065
  4. ATORVASTATIN CALCIUM [Concomitant]
     Indication: PRODUCT USED FOR UNKNOWN INDICATION
     Route: 065
  5. ESTRADIOL [Concomitant]
     Indication: HORMONE REPLACEMENT THERAPY
     Route: 065
  6. TYLOX (OXYCODONE AND ACETAMINOPHEN) [Concomitant]
     Indication: PAIN
     Route: 065
  7. ERGOCALCIFEROL [Concomitant]
     Indication: SUPPLEMENTATION THERAPY
     Route: 065
  8. HUMIRA [Suspect]
     Dosage: 40 MG/ 0.6ML PEN (1 IN 2 WEEKS)
     Route: 065
     Dates: start: 20110301, end: 20111201
  9. NAPROXEN SODIUM [Concomitant]
     Indication: PRODUCT USED FOR UNKNOWN INDICATION
     Route: 065
  10. MORPHINE SULFATE [Concomitant]
     Indication: PAIN
     Route: 065
  11. LIPITOR [Concomitant]
     Indication: BLOOD CHOLESTEROL INCREASED
     Route: 065
  12. TOPAMAX [Suspect]
     Indication: HEADACHE
     Route: 065
  13. FENTANYL-100 [Concomitant]
     Indication: PAIN
     Route: 062
  14. TRAZODONE HCL [Concomitant]
     Indication: SLEEP DISORDER
     Route: 065
  15. TOPAMAX [Suspect]
     Route: 065
  16. HUMIRA [Suspect]
     Route: 065
     Dates: start: 20120301
  17. TRAMADOL HYDROCHLORIDE [Concomitant]
     Indication: PRODUCT USED FOR UNKNOWN INDICATION
     Route: 065
  18. HUMIRA [Suspect]
     Indication: RHEUMATOID ARTHRITIS
     Route: 065
     Dates: start: 20120301
  19. PREDNISONE TAB [Concomitant]
     Indication: RHEUMATOID ARTHRITIS
     Route: 065
  20. VITAMIN [Concomitant]
     Indication: VITAMIN SUPPLEMENTATION
     Route: 065

REACTIONS (7)
  - VISION BLURRED [None]
  - DEMYELINATION [None]
  - LOSS OF CONSCIOUSNESS [None]
  - DYSARTHRIA [None]
  - HEADACHE [None]
  - PLEURISY [None]
  - PAIN [None]
